FAERS Safety Report 5917907-6 (Version None)
Quarter: 2008Q4

REPORT INFORMATION
  Report Type: 
  Country: None (occurrence: None)
  Receive Date: 20081014
  Receipt Date: 20080506
  Transmission Date: 20090506
  Serious: No
  Sender: FDA-Public Use
  Company Number: US-ABBOTT-08P-163-0450679-00

PATIENT
  Sex: Female

DRUGS (5)
  1. KALETRA [Suspect]
     Indication: HIV INFECTION
     Dosage: 400/100MG 3 CAPS 3 TIMES DAILY
     Route: 048
     Dates: start: 20040101, end: 20040804
  2. BACTRIM [Suspect]
     Indication: PROPHYLAXIS
     Dates: end: 20040701
  3. DAPSONE [Suspect]
     Indication: PROPHYLAXIS
     Dates: start: 20040701, end: 20040901
  4. LAMIVUDINE + ZIDOVUDINE [Suspect]
     Indication: ANTIVIRAL PROPHYLAXIS
  5. UNKNOWN MEDICATION [Concomitant]
     Indication: DRUG USE FOR UNKNOWN INDICATION

REACTIONS (2)
  - HAEMOLYSIS [None]
  - HAEMOLYTIC ANAEMIA [None]
